FAERS Safety Report 9215108 (Version 1)
Quarter: 2013Q2

REPORT INFORMATION
  Report Type: Spontaneous
  Country: FR (occurrence: FR)
  Receive Date: 20130405
  Receipt Date: 20130405
  Transmission Date: 20140414
  Serious: Yes (Other)
  Sender: FDA-Public Use
  Company Number: FR-COVIDIEN/TYCO HEALTHCARE/MALLINCKRODT-T201301588

PATIENT
  Age: 50 Year
  Sex: Female

DRUGS (1)
  1. OPTIJECT 350 [Suspect]
     Indication: SCAN
     Dosage: 100 ML, SINGLE
     Route: 042
     Dates: start: 20130326, end: 20130326

REACTIONS (3)
  - Dizziness [Recovered/Resolved]
  - Oedema [Recovered/Resolved]
  - Rash erythematous [Recovered/Resolved]
